FAERS Safety Report 4600432-2 (Version None)
Quarter: 2005Q1

REPORT INFORMATION
  Report Type: 
  Country: None (occurrence: None)
  Receive Date: 20050301
  Receipt Date: 20050210
  Transmission Date: 20050727
  Serious: Yes (Other)
  Sender: FDA-Public Use
  Company Number: GBWYE417911FEB05

PATIENT
  Age: 6 Year
  Sex: Male

DRUGS (2)
  1. REFACTO [Suspect]
     Indication: FACTOR VIII DEFICIENCY
     Dosage: 1000 UNIT 3X PER 1 WK INTRAVENOUS
     Route: 042
  2. REFACTO [Suspect]
     Indication: PROPHYLAXIS
     Dosage: 1000 UNIT 3X PER 1 WK INTRAVENOUS
     Route: 042

REACTIONS (2)
  - DRUG EFFECT DECREASED [None]
  - HAEMORRHAGE [None]
